FAERS Safety Report 8577436-0 (Version None)
Quarter: 2012Q3

REPORT INFORMATION
  Report Type: 
  Country: None (occurrence: None)
  Receive Date: 20120807
  Receipt Date: 20120731
  Transmission Date: 20120928
  Serious: Yes (Other)
  Sender: FDA-Public Use
  Company Number: PHHY2012IT067147

PATIENT
  Sex: Female

DRUGS (8)
  1. KONAKION [Concomitant]
     Route: 048
  2. SEREPRILE [Suspect]
     Indication: SENILE DEMENTIA
     Route: 048
     Dates: start: 20120628, end: 20120723
  3. ALPRAZOLAM [Suspect]
     Dates: start: 20120718, end: 20120723
  4. KONAKION [Concomitant]
  5. LASIX [Concomitant]
     Route: 048
  6. NEXIUM [Concomitant]
  7. RIFAXIMIN [Concomitant]
  8. ALDACTONE [Concomitant]
     Route: 048

REACTIONS (3)
  - COMA [None]
  - DRUG ABUSE [None]
  - SOPOR [None]
